FAERS Safety Report 19891518 (Version 1)
Quarter: 2021Q3

REPORT INFORMATION
  Report Type: Spontaneous
  Country: IT (occurrence: IT)
  Receive Date: 20210928
  Receipt Date: 20210928
  Transmission Date: 20211014
  Serious: Yes (Other)
  Sender: FDA-Public Use
  Company Number: IT-OTSUKA-2021_032859

PATIENT
  Age: 19 Year
  Sex: Male
  Weight: 70 kg

DRUGS (1)
  1. ARIPIPRAZOLE. [Suspect]
     Active Substance: ARIPIPRAZOLE
     Indication: PRODUCT USED FOR UNKNOWN INDICATION
     Dosage: UNK
     Route: 048

REACTIONS (3)
  - Oppositional defiant disorder [Recovering/Resolving]
  - Product substitution issue [Unknown]
  - Aggression [Recovering/Resolving]

NARRATIVE: CASE EVENT DATE: 20210701
